FAERS Safety Report 13338955 (Version 2)
Quarter: 2017Q1

REPORT INFORMATION
  Report Type: Report from Study
  Country: PL (occurrence: PL)
  Receive Date: 20170315
  Receipt Date: 20170322
  Transmission Date: 20170428
  Serious: Yes (Hospitalization, Other)
  Sender: FDA-Public Use
  Company Number: PL-ASTRAZENECA-2017SE23493

PATIENT
  Age: 21821 Day
  Sex: Female

DRUGS (19)
  1. METFORMAX [Suspect]
     Active Substance: METFORMIN HYDROCHLORIDE
     Indication: DIABETES MELLITUS
     Route: 048
     Dates: end: 20150120
  2. METFORMAX [Suspect]
     Active Substance: METFORMIN HYDROCHLORIDE
     Indication: DIABETES MELLITUS
     Route: 048
     Dates: start: 20150121, end: 20170228
  3. DIAPREL MR [Concomitant]
     Active Substance: GLICLAZIDE
     Indication: TYPE 2 DIABETES MELLITUS
     Route: 048
     Dates: start: 20150121, end: 20150616
  4. PLACEBO [Suspect]
     Active Substance: UNSPECIFIED INGREDIENT
     Indication: TYPE 2 DIABETES MELLITUS
     Route: 048
     Dates: start: 20140312, end: 20170228
  5. BETO ZK [Concomitant]
     Active Substance: METOPROLOL SUCCINATE
     Indication: HYPERTENSION
     Route: 048
  6. MELODYN [Concomitant]
     Indication: SPINAL OSTEOARTHRITIS
     Route: 003
     Dates: start: 20160518
  7. XARELTO [Concomitant]
     Active Substance: RIVAROXABAN
     Indication: CEREBROVASCULAR ACCIDENT
     Route: 048
     Dates: start: 20161103
  8. DIAPREL MR [Concomitant]
     Active Substance: GLICLAZIDE
     Indication: TYPE 2 DIABETES MELLITUS
     Route: 048
     Dates: start: 20150617, end: 20160915
  9. EUTHYROX [Concomitant]
     Active Substance: LEVOTHYROXINE SODIUM
     Indication: GOITRE
     Route: 048
  10. ZALANZO [Concomitant]
     Indication: DUODENITIS
     Route: 048
     Dates: start: 20160916, end: 20170220
  11. DIAPREL MR [Concomitant]
     Active Substance: GLICLAZIDE
     Indication: TYPE 2 DIABETES MELLITUS
     Route: 048
     Dates: start: 20160916, end: 20170227
  12. ACARD [Concomitant]
     Active Substance: ASPIRIN
     Indication: CARDIOVASCULAR EVENT PROPHYLAXIS
     Route: 048
     Dates: end: 20170228
  13. DOXAR [Concomitant]
     Indication: HYPERTENSION
     Route: 048
     Dates: start: 20141210
  14. APAP [Concomitant]
     Active Substance: ACETAMINOPHEN
     Indication: SPINAL PAIN
     Route: 048
     Dates: start: 20160616
  15. PADOLTEN [Concomitant]
     Indication: RADICULOPATHY
     Route: 048
     Dates: start: 20141210
  16. TRIPLIXAM [Concomitant]
     Active Substance: AMLODIPINE BESYLATE\INDAPAMIDE\PERINDOPRIL ARGININE
     Indication: HYPERTENSION
     Route: 048
     Dates: start: 20160212
  17. LANBAX [Concomitant]
     Indication: GASTROOESOPHAGEAL REFLUX DISEASE
     Route: 048
     Dates: start: 20141211
  18. ROSWERA [Suspect]
     Active Substance: ROSUVASTATIN
     Route: 048
     Dates: end: 20170227
  19. PANZOL [Concomitant]
     Active Substance: PANTOPRAZOLE SODIUM
     Indication: GASTRODUODENITIS
     Route: 048
     Dates: start: 20161031, end: 20170228

REACTIONS (1)
  - Drug-induced liver injury [Recovered/Resolved]

NARRATIVE: CASE EVENT DATE: 20170223
